FAERS Safety Report 9347403 (Version 1)
Quarter: 2013Q2

REPORT INFORMATION
  Report Type: Spontaneous
  Country: US (occurrence: US)
  Receive Date: 20130613
  Receipt Date: 20130613
  Transmission Date: 20140414
  Serious: Yes (Hospitalization)
  Sender: FDA-Public Use
  Company Number: US-GILEAD-2013-0076939

PATIENT
  Age: 25 Year
  Sex: Male

DRUGS (1)
  1. LETAIRIS [Suspect]
     Indication: PULMONARY HYPERTENSION
     Dosage: 10 MG, QD
     Dates: start: 20080402, end: 20130526

REACTIONS (4)
  - Lung transplant [Recovered/Resolved]
  - Pneumonia aspiration [Recovering/Resolving]
  - Fluid retention [Recovering/Resolving]
  - Asthenia [Recovering/Resolving]
